FAERS Safety Report 9425974 (Version 1)
Quarter: 2013Q3

REPORT INFORMATION
  Report Type: Spontaneous
  Country: GB (occurrence: GB)
  Receive Date: 20130729
  Receipt Date: 20130729
  Transmission Date: 20140515
  Serious: Yes (Disabling)
  Sender: FDA-Public Use
  Company Number: GB-AMGEN-GBRSP2013051689

PATIENT
  Age: 75 Year
  Sex: Female

DRUGS (5)
  1. PROLIA [Suspect]
     Indication: OSTEOPOROSIS
     Dosage: 60 MG, UNK
     Route: 058
     Dates: start: 20130207
  2. CALCICHEW D3 [Concomitant]
  3. LANSOPRAZOLE [Concomitant]
  4. SALBUTAMOL [Concomitant]
  5. STEMETIL                           /00013301/ [Concomitant]

REACTIONS (5)
  - Pruritus [Recovered/Resolved with Sequelae]
  - Malaise [Unknown]
  - Lethargy [Unknown]
  - Nausea [Unknown]
  - Rash [Recovered/Resolved with Sequelae]
